FAERS Safety Report 5223607-0 (Version None)
Quarter: 2007Q1

REPORT INFORMATION
  Report Type: 
  Country: None (occurrence: None)
  Receive Date: 20070123
  Receipt Date: 20070112
  Transmission Date: 20070707
  Serious: Yes (Hospitalization)
  Sender: FDA-Public Use
  Company Number: THYM-11204

PATIENT
  Age: 66 Year
  Sex: Female
  Weight: 46 kg

DRUGS (3)
  1. THYMOGLOBULIN [Suspect]
     Indication: RENAL TRANSPLANT
     Dates: start: 20060712, end: 20060712
  2. BACTRIM [Concomitant]
  3. NEORAL [Concomitant]

REACTIONS (8)
  - ANAEMIA [None]
  - BURNING SENSATION [None]
  - HERPES SIMPLEX [None]
  - LIP OEDEMA [None]
  - OEDEMA MOUTH [None]
  - PAIN IN EXTREMITY [None]
  - URTICARIA [None]
  - VULVAL OEDEMA [None]
